FAERS Safety Report 6279507-0 (Version None)
Quarter: 2009Q3

REPORT INFORMATION
  Report Type: 
  Country: None (occurrence: None)
  Receive Date: 20090723
  Receipt Date: 20090713
  Transmission Date: 20100115
  Serious: Yes (Other)
  Sender: FDA-Public Use
  Company Number: US-PFIZER INC-2006057360

PATIENT
  Sex: Female
  Weight: 93 kg

DRUGS (13)
  1. PROVERA [Suspect]
     Indication: HORMONE REPLACEMENT THERAPY
     Dosage: UNK
     Route: 048
     Dates: start: 19960101, end: 20021001
  2. MEDROXYPROGESTERONE AND MEDROXYPROGESTERONE ACETATE [Suspect]
     Indication: HORMONE REPLACEMENT THERAPY
     Dosage: UNK
     Route: 048
     Dates: start: 19960101, end: 20021001
  3. MEDROXYPROGESTERONE ACETATE [Suspect]
     Indication: HORMONE REPLACEMENT THERAPY
     Dosage: UNK
     Dates: start: 19960101, end: 20010101
  4. PREMARIN [Suspect]
     Indication: HORMONE REPLACEMENT THERAPY
     Dosage: UNK
     Dates: start: 19960101, end: 20000101
  5. PREMPRO [Suspect]
     Indication: HORMONE REPLACEMENT THERAPY
     Dosage: UNK
     Dates: start: 20001001, end: 20020501
  6. FEMHRT [Suspect]
     Indication: HORMONE REPLACEMENT THERAPY
     Dosage: UNK
     Dates: start: 20020101
  7. IBUPROFEN [Concomitant]
     Indication: ARTHRITIS
     Dosage: 800 MG, 2X/DAY
     Dates: start: 20000101, end: 20030101
  8. IBUPROFEN [Concomitant]
     Indication: PAIN
  9. SYNTHROID [Concomitant]
     Indication: THYROID DISORDER
     Dosage: 0.175 MG, 1X/DAY
     Dates: start: 20000101
  10. KLOR-CON [Concomitant]
     Indication: BLOOD POTASSIUM
     Dosage: UNK
     Dates: start: 20000101
  11. CLONIDINE [Concomitant]
     Indication: BLOOD PRESSURE
     Dosage: 0.1 MG, 3X/DAY
     Dates: start: 20000101
  12. APAP TAB [Concomitant]
     Indication: PAIN
     Dosage: UNK
     Dates: start: 20000101, end: 20040101
  13. VIOXX [Concomitant]
     Indication: ARTHRITIS
     Dosage: UNK
     Dates: start: 20010101, end: 20040101

REACTIONS (1)
  - BREAST CANCER FEMALE [None]
